FAERS Safety Report 5756741-7 (Version None)
Quarter: 2008Q2

REPORT INFORMATION
  Report Type: 
  Country: None (occurrence: None)
  Receive Date: 20080603
  Receipt Date: 20080521
  Transmission Date: 20081010
  Serious: Yes (Other)
  Sender: FDA-Public Use
  Company Number: FI-AMGEN-US269140

PATIENT
  Sex: Male

DRUGS (12)
  1. ENBREL [Suspect]
     Indication: ANKYLOSING SPONDYLITIS
     Route: 058
     Dates: end: 20070625
  2. HUMIRA [Suspect]
     Indication: ANKYLOSING SPONDYLITIS
     Route: 065
     Dates: start: 20070627
  3. DICLOFENAC SODIUM [Concomitant]
     Route: 065
  4. DIAZEPAM [Concomitant]
     Route: 065
  5. TIMOLOL MALEATE [Concomitant]
     Route: 065
  6. MIANSERIN HYDROCHLORIDE [Concomitant]
     Route: 065
  7. MEDROL [Concomitant]
     Indication: ANKYLOSING SPONDYLITIS
     Route: 065
  8. XATRAL [Concomitant]
     Indication: DYSURIA
     Route: 065
  9. FOSAMAX [Concomitant]
     Indication: OSTEOPOROSIS
     Route: 065
  10. FML [Concomitant]
     Indication: IRITIS
     Route: 047
  11. IMOVANE [Concomitant]
     Indication: INSOMNIA
     Route: 065
  12. IDEOS [Concomitant]
     Indication: OSTEOPOROSIS
     Route: 065

REACTIONS (1)
  - AMYOTROPHIC LATERAL SCLEROSIS [None]
